FAERS Safety Report 16766564 (Version 5)
Quarter: 2019Q4

REPORT INFORMATION
  Report Type: Spontaneous
  Country: US (occurrence: US)
  Receive Date: 20190903
  Receipt Date: 20191202
  Transmission Date: 20200122
  Serious: No
  Sender: FDA-Public Use
  Company Number: US-PFIZER INC-2019317589

PATIENT
  Age: 51 Year
  Sex: Female
  Weight: 100 kg

DRUGS (2)
  1. LEVOTHYROXINE AND LIOTHYRONINE [LEVOTHYROXINE;LIOTHYRONINE] [Concomitant]
     Indication: AUTOIMMUNE THYROIDITIS
     Dosage: 2 DF, DAILY
     Route: 048
     Dates: start: 201906
  2. PREMPRO [Suspect]
     Active Substance: ESTROGENS, CONJUGATED\MEDROXYPROGESTERONE ACETATE
     Dosage: 0.625 MG, 1X/DAY
     Route: 048
     Dates: start: 20190807

REACTIONS (20)
  - Drug ineffective [Unknown]
  - Agitation [Not Recovered/Not Resolved]
  - Peripheral swelling [Not Recovered/Not Resolved]
  - Malaise [Unknown]
  - Blood cholesterol increased [Unknown]
  - Affective disorder [Not Recovered/Not Resolved]
  - Oropharyngeal pain [Unknown]
  - Pruritus [Unknown]
  - Anger [Not Recovered/Not Resolved]
  - Hot flush [Recovering/Resolving]
  - Weight increased [Unknown]
  - Depression [Unknown]
  - Upper respiratory tract infection [Unknown]
  - Hyperhidrosis [Not Recovered/Not Resolved]
  - Nasal discomfort [Unknown]
  - Rhinalgia [Unknown]
  - Sinusitis [Unknown]
  - Sleep disorder [Unknown]
  - Nervousness [Not Recovered/Not Resolved]
  - Arthralgia [Not Recovered/Not Resolved]

NARRATIVE: CASE EVENT DATE: 2019
